FAERS Safety Report 4643035-6 (Version None)
Quarter: 2005Q2

REPORT INFORMATION
  Report Type: 
  Country: None (occurrence: None)
  Receive Date: 20050422
  Receipt Date: 20050218
  Transmission Date: 20051028
  Serious: Yes (Other)
  Sender: FDA-Public Use
  Company Number: 2002053918

PATIENT
  Sex: Male
  Weight: 67.586 kg

DRUGS (8)
  1. DILANTIN [Suspect]
     Indication: PETIT MAL EPILEPSY
     Dosage: 200 MG (2 IN 1 D), ORAL
     Route: 048
  2. ATENOLOL [Concomitant]
  3. LISINOPRIL [Concomitant]
  4. ASPIRIN [Concomitant]
  5. MULTIVITAMIN [Concomitant]
  6. INSULIN [Concomitant]
  7. AMLODIPINE [Concomitant]
  8. VITAMINS (VITAMINS) [Concomitant]

REACTIONS (13)
  - ABNORMAL BEHAVIOUR [None]
  - ANTICONVULSANT DRUG LEVEL DECREASED [None]
  - BLOOD GLUCOSE DECREASED [None]
  - BLOOD GLUCOSE INCREASED [None]
  - CARDIAC DISORDER [None]
  - CONSTIPATION [None]
  - DIABETES MELLITUS [None]
  - DISEASE RECURRENCE [None]
  - GRAND MAL CONVULSION [None]
  - HYPERTENSION [None]
  - LOSS OF CONSCIOUSNESS [None]
  - PETIT MAL EPILEPSY [None]
  - URINARY INCONTINENCE [None]
